FAERS Safety Report 5285733-X (Version None)
Quarter: 2007Q1

REPORT INFORMATION
  Report Type: 
  Country: None (occurrence: None)
  Receive Date: 20070130
  Receipt Date: 20061113
  Transmission Date: 20070707
  Serious: Yes (Other)
  Sender: FDA-Public Use
  Company Number: 2006RL000416

PATIENT
  Age: 75 Year
  Sex: Female

DRUGS (5)
  1. PROPAFENONE HCL [Suspect]
     Indication: ANGINA PECTORIS
     Dosage: 450 MG;QD;PO
     Route: 048
     Dates: start: 20061019, end: 20061023
  2. METOCLOPRAMIDE HYDROCHLORIDE [Concomitant]
  3. THIETHYLPERAZINE MALEATE [Concomitant]
  4. DIAZEPAM [Concomitant]
  5. DIROTON [Concomitant]

REACTIONS (3)
  - DYSPEPSIA [None]
  - NAUSEA [None]
  - PRESYNCOPE [None]
